FAERS Safety Report 4761873-6 (Version None)
Quarter: 2005Q3

REPORT INFORMATION
  Report Type: 
  Country: None (occurrence: None)
  Receive Date: 20050906
  Receipt Date: 20050809
  Transmission Date: 20060218
  Serious: Yes (Hospitalization)
  Sender: FDA-Public Use
  Company Number: 2005AP04335

PATIENT
  Age: 24498 Day
  Sex: Male

DRUGS (11)
  1. SEROQUEL [Suspect]
     Indication: SCHIZOPHRENIA
     Route: 048
     Dates: start: 20041101, end: 20050720
  2. SEROQUEL [Suspect]
     Route: 048
     Dates: start: 20050721, end: 20050723
  3. SILECE [Suspect]
     Route: 048
     Dates: end: 20050720
  4. SILECE [Suspect]
     Route: 048
     Dates: start: 20050721, end: 20050723
  5. PROMETHAZINE HCL [Suspect]
     Route: 048
     Dates: end: 20050720
  6. LIMAS [Concomitant]
     Route: 048
     Dates: end: 20050720
  7. LIMAS [Concomitant]
     Route: 048
     Dates: start: 20050721, end: 20050723
  8. AKINETON [Concomitant]
     Route: 048
     Dates: end: 20050720
  9. AKINETON [Concomitant]
     Route: 048
     Dates: start: 20050721, end: 20050723
  10. PURSENNID [Concomitant]
     Route: 048
     Dates: end: 20050720
  11. PURSENNID [Concomitant]
     Route: 048
     Dates: start: 20050721, end: 20050723

REACTIONS (5)
  - DEHYDRATION [None]
  - GRANULOCYTE COUNT DECREASED [None]
  - NEUTROPHIL COUNT DECREASED [None]
  - PYREXIA [None]
  - WHITE BLOOD CELL COUNT DECREASED [None]
